FAERS Safety Report 23231267 (Version 1)
Quarter: 2023Q4

REPORT INFORMATION
  Report Type: Spontaneous
  Country: RU (occurrence: RU)
  Receive Date: 20231127
  Receipt Date: 20231127
  Transmission Date: 20240109
  Serious: Yes (Other)
  Sender: FDA-Public Use
  Company Number: RU-BRISTOL-MYERS SQUIBB COMPANY-2023-170023

PATIENT
  Age: 37 Year

DRUGS (2)
  1. IPILIMUMAB [Suspect]
     Active Substance: IPILIMUMAB
     Indication: Choroid melanoma
  2. NIVOLUMAB [Suspect]
     Active Substance: NIVOLUMAB
     Indication: Choroid melanoma

REACTIONS (2)
  - Type 1 diabetes mellitus [Unknown]
  - Depressed level of consciousness [Unknown]
